FAERS Safety Report 25338925 (Version 2)
Quarter: 2025Q4

REPORT INFORMATION
  Report Type: Spontaneous
  Country: US (occurrence: US)
  Receive Date: 20250520
  Receipt Date: 20251003
  Transmission Date: 20260117
  Serious: No
  Sender: BRISTOL-MYERS SQUIBB COMPANY
  Company Number: US-BRISTOL-MYERS SQUIBB COMPANY-2025-072347

PATIENT
  Age: 71 Year
  Sex: Male

DRUGS (2)
  1. LENALIDOMIDE [Suspect]
     Active Substance: LENALIDOMIDE
     Indication: Myelodysplastic syndrome
     Dosage: TAKE 1 CAPSULE WHOLE BY MOUTH WITH WATER EVERY DAY ON DAYS 1-21 OF A 28 DAY CYCLE
  2. LENALIDOMIDE [Suspect]
     Active Substance: LENALIDOMIDE

REACTIONS (3)
  - Neutrophil count abnormal [Recovering/Resolving]
  - Treatment noncompliance [Recovering/Resolving]
  - Laboratory test abnormal [Recovering/Resolving]
